FAERS Safety Report 9960144 (Version 2)
Quarter: 2014Q1

REPORT INFORMATION
  Report Type: Report from Study
  Country: US (occurrence: US)
  Receive Date: 20140305
  Receipt Date: 20140305
  Transmission Date: 20141002
  Serious: No
  Sender: FDA-Public Use
  Company Number: US-ABBVIE-13P-163-1067074-00

PATIENT
  Age: 63 Year
  Sex: Male

DRUGS (10)
  1. HUMIRA [Suspect]
     Indication: COLITIS ULCERATIVE
     Dates: start: 20130312, end: 20130312
  2. HUMIRA [Suspect]
     Route: 058
  3. ADVAIR [Concomitant]
     Indication: BRONCHIECTASIS
     Dosage: 250/50 MCG 1 PUFF QD, ADDITIONAL DOSES AS REQUIRED
  4. PROAIR [Concomitant]
     Indication: BRONCHIECTASIS
     Dosage: AS NEEDED
  5. ASTELIN [Concomitant]
     Indication: BRONCHIECTASIS
     Dosage: 137 MCG 1 SPRAY EACH NOSTRIL DAILY
     Route: 045
  6. BALSALAZIDE [Concomitant]
     Indication: COLITIS ULCERATIVE
  7. LORAZEPAM [Concomitant]
     Indication: MUSCLE RELAXANT THERAPY
     Dosage: 0.5 MG 1 TAB AS NEEDED
  8. LORAZEPAM [Concomitant]
     Indication: COLITIS
  9. OMEPRAZOLE [Concomitant]
     Indication: GASTROOESOPHAGEAL REFLUX DISEASE
  10. BUDESONIDE [Concomitant]
     Indication: COLITIS
     Dates: end: 20130625

REACTIONS (9)
  - Tooth disorder [Unknown]
  - Tooth disorder [Unknown]
  - Tooth disorder [Unknown]
  - Injection site pain [Unknown]
  - Injection site pain [Recovering/Resolving]
  - Gastrointestinal haemorrhage [Unknown]
  - Injection site pain [Recovered/Resolved]
  - Drug ineffective [Not Recovered/Not Resolved]
  - Defaecation urgency [Not Recovered/Not Resolved]
